FAERS Safety Report 17323840 (Version 1)
Quarter: 2020Q1

REPORT INFORMATION
  Report Type: Spontaneous
  Country: US (occurrence: US)
  Receive Date: 20200127
  Receipt Date: 20200127
  Transmission Date: 20200409
  Serious: No
  Sender: FDA-Public Use
  Company Number: US-AUROBINDO-AUR-APL-2019-073300

PATIENT
  Sex: Female

DRUGS (2)
  1. AZITHROMYCIN TABLETS 500 MG USP [Suspect]
     Active Substance: AZITHROMYCIN
     Indication: OROPHARYNGEAL PAIN
  2. AZITHROMYCIN TABLETS 500 MG USP [Suspect]
     Active Substance: AZITHROMYCIN
     Indication: COUGH
     Dosage: 1 DOSAGE FORM, ONCE A DAY
     Route: 065
     Dates: start: 20191105, end: 20191107

REACTIONS (1)
  - Rash [Not Recovered/Not Resolved]

NARRATIVE: CASE EVENT DATE: 20191106
